FAERS Safety Report 5427204-3 (Version None)
Quarter: 2007Q3

REPORT INFORMATION
  Report Type: 
  Country: None (occurrence: None)
  Receive Date: 20070823
  Receipt Date: 20070823
  Transmission Date: 20080115
  Serious: No
  Sender: FDA-Public Use
  Company Number: None

PATIENT

DRUGS (2)
  1. AMANTADINE HYDROCHLORIDE [Suspect]
  2. AMITRIPTYLINE HYDROCHLORIDE [Suspect]

REACTIONS (3)
  - LETHARGY [None]
  - MEDICATION ERROR [None]
  - WRONG DRUG ADMINISTERED [None]
